FAERS Safety Report 18005283 (Version 1)
Quarter: 2020Q3

REPORT INFORMATION
  Report Type: Spontaneous
  Country: IQ (occurrence: IQ)
  Receive Date: 20200710
  Receipt Date: 20200710
  Transmission Date: 20201103
  Serious: Yes (Other)
  Sender: FDA-Public Use
  Company Number: IQ-SUN PHARMACEUTICAL INDUSTRIES LTD-2020R1-252996

PATIENT
  Sex: Male
  Weight: 2.2 kg

DRUGS (3)
  1. PARACETAMOL [Suspect]
     Active Substance: ACETAMINOPHEN
     Indication: COVID-19
     Dosage: UNK (INFUSION 1% W/V, 1 000 MG/100 ML INFUSION)
     Route: 064
  2. SALBUTAMOL [Suspect]
     Active Substance: ALBUTEROL
     Indication: COVID-19
     Dosage: UNK
     Route: 064
  3. CHLOROQUINE. [Suspect]
     Active Substance: CHLOROQUINE
     Indication: COVID-19
     Dosage: 200 MILLIGRAM, BID
     Route: 064

REACTIONS (3)
  - Foetal exposure during pregnancy [Unknown]
  - Premature baby [Unknown]
  - Low birth weight baby [Unknown]
